FAERS Safety Report 21372653 (Version 1)
Quarter: 2022Q3

REPORT INFORMATION
  Report Type: Spontaneous
  Country: US (occurrence: US)
  Receive Date: 20220924
  Receipt Date: 20220924
  Transmission Date: 20221027
  Serious: Yes (Other)
  Sender: FDA-Public Use
  Company Number: US-SA-SAC20220923000187

PATIENT
  Sex: Female

DRUGS (1)
  1. DUPIXENT [Suspect]
     Active Substance: DUPILUMAB
     Dosage: 300MG, OTHER
     Route: 058

REACTIONS (6)
  - Psoriatic arthropathy [Unknown]
  - Eczema [Unknown]
  - Psoriasis [Unknown]
  - Skin discolouration [Unknown]
  - Erythema [Unknown]
  - Arthralgia [Unknown]
